FAERS Safety Report 20632643 (Version 1)
Quarter: 2022Q1

REPORT INFORMATION
  Report Type: Spontaneous
  Country: CN (occurrence: CN)
  Receive Date: 20220324
  Receipt Date: 20220324
  Transmission Date: 20220423
  Serious: Yes (Life-Threatening, Other)
  Sender: FDA-Public Use
  Company Number: CN-009507513-2203CHN005415

PATIENT
  Age: 63 Year
  Sex: Male
  Weight: 66.5 kg

DRUGS (3)
  1. CANCIDAS [Suspect]
     Active Substance: CASPOFUNGIN ACETATE
     Indication: Fungal infection
     Dosage: FIRST DOSE 70 MG; 1 TIME IN 1 DAY (QD)/ONCE
     Route: 041
     Dates: start: 20220219, end: 20220219
  2. CANCIDAS [Suspect]
     Active Substance: CASPOFUNGIN ACETATE
     Dosage: MAINTAIN DOSE 50 MG, ONCE DAILY (QD)
     Route: 041
     Dates: start: 20220220, end: 20220304
  3. SODIUM CHLORIDE [Concomitant]
     Active Substance: SODIUM CHLORIDE
     Dosage: 250 MILLILITER, ONCE A DAY (QD)
     Route: 041
     Dates: start: 20220219, end: 20220304

REACTIONS (1)
  - Hypokalaemia [Recovering/Resolving]

NARRATIVE: CASE EVENT DATE: 20220304
